FAERS Safety Report 7337698-4 (Version None)
Quarter: 2011Q1

REPORT INFORMATION
  Report Type: 
  Country: None (occurrence: None)
  Receive Date: 20110308
  Receipt Date: 20110228
  Transmission Date: 20110831
  Serious: Yes (Hospitalization)
  Sender: FDA-Public Use
  Company Number: US-AMGEN-USACT2010002625

PATIENT
  Age: 65 Year
  Sex: Female

DRUGS (23)
  1. GEMFIBROZIL [Concomitant]
     Dosage: 600 MG, QD
  2. DILANTIN [Concomitant]
     Dosage: 100 MG, UNK
  3. ZOCOR [Concomitant]
     Dosage: 20 MG, QHS
  4. FEXOFENADINE [Concomitant]
  5. LISINOPRIL [Concomitant]
     Dosage: 40 MG, QD
  6. ASPIRIN [Concomitant]
     Dosage: 325 MG, QD
  7. PROZAC                             /00724401/ [Concomitant]
     Dosage: 20 MG, QD
  8. TUMS                               /00108001/ [Concomitant]
     Dosage: UNK UNK, PRN
  9. EPOGEN [Concomitant]
  10. BENADRYL [Concomitant]
     Dosage: 25 MG, PRN
  11. NORVASC [Concomitant]
     Dosage: 2.5 MG, BID
  12. LOPERAMIDE [Concomitant]
     Dosage: 2 MG, PRN
  13. PHOSLO [Concomitant]
     Dosage: 660 MG, BID
  14. GLYBURIDE [Concomitant]
     Dosage: 5 MG, BID
  15. LASIX [Concomitant]
     Dosage: 80 MG, BID
  16. LORATADINE [Concomitant]
     Dosage: 10 MG, PRN
  17. PRILOSEC [Concomitant]
     Dosage: UNK UNK, QD
  18. MAGNESIUM [Concomitant]
  19. CINACALCET HYDROCHLORIDE [Suspect]
     Indication: HYPERPARATHYROIDISM SECONDARY
     Dosage: UNK UNK, Q3WK
     Route: 042
     Dates: start: 20100217
  20. ZEMPLAR [Concomitant]
     Dosage: UNK UNK, 3 TIMES/WK
     Route: 042
  21. FISH OIL [Concomitant]
     Dosage: 1000 MG, QD
  22. TOPROL-XL                          /00376902/ [Concomitant]
     Dosage: 12.5 MG, QD
  23. PLETAL [Concomitant]
     Dosage: 100 MG, QD

REACTIONS (1)
  - GASTROENTERITIS VIRAL [None]
